FAERS Safety Report 5251452-9 (Version None)
Quarter: 2007Q1

REPORT INFORMATION
  Report Type: 
  Country: None (occurrence: None)
  Receive Date: 20070228
  Receipt Date: 20060510
  Transmission Date: 20070707
  Serious: No
  Sender: FDA-Public Use
  Company Number: US-GLAXOSMITHKLINE-A0605091A

PATIENT
  Age: 44 Year
  Sex: Male

DRUGS (2)
  1. LAMICTAL [Suspect]
     Dosage: 100MG PER DAY
     Route: 048
     Dates: start: 20060301
  2. METHYLPHENIDATE [Concomitant]

REACTIONS (4)
  - ANXIETY [None]
  - HEADACHE [None]
  - NECK PAIN [None]
  - RESTLESSNESS [None]
